FAERS Safety Report 21218475 (Version 1)
Quarter: 2022Q3

REPORT INFORMATION
  Report Type: Spontaneous
  Country: TW (occurrence: TW)
  Receive Date: 20220816
  Receipt Date: 20220816
  Transmission Date: 20221026
  Serious: Yes (Other)
  Sender: FDA-Public Use
  Company Number: TW-NOVARTISPH-NVSC2022TW184640

PATIENT
  Age: 16 Year
  Sex: Male

DRUGS (9)
  1. CYCLOSPORINE [Suspect]
     Active Substance: CYCLOSPORINE
     Indication: Immunosuppression
     Dosage: UNK
     Route: 065
     Dates: end: 202109
  2. PREDNISOLONE [Suspect]
     Active Substance: PREDNISOLONE
     Indication: Product used for unknown indication
     Dosage: 1 MG/KG, QD
     Route: 065
     Dates: start: 20220721
  3. DEXAMETHASONE [Suspect]
     Active Substance: DEXAMETHASONE
     Indication: Product used for unknown indication
     Dosage: UNK
     Route: 065
  4. CYTARABINE [Concomitant]
     Active Substance: CYTARABINE
     Indication: Product used for unknown indication
     Dosage: UNK
     Route: 065
  5. FLUDARABINE [Concomitant]
     Active Substance: FLUDARABINE PHOSPHATE
     Indication: Product used for unknown indication
     Dosage: UNK
     Route: 065
  6. IDARUBICIN [Concomitant]
     Active Substance: IDARUBICIN
     Indication: Product used for unknown indication
     Dosage: UNK
     Route: 065
  7. SORAFENIB [Concomitant]
     Active Substance: SORAFENIB
     Indication: Product used for unknown indication
     Dosage: UNK
     Route: 065
  8. ETOPOSIDE [Concomitant]
     Active Substance: ETOPOSIDE
     Indication: Product used for unknown indication
     Dosage: UNK
     Route: 065
  9. RUXOLITINIB [Concomitant]
     Active Substance: RUXOLITINIB
     Indication: Product used for unknown indication
     Dosage: UNK
     Route: 065
     Dates: start: 20220721

REACTIONS (10)
  - Acute graft versus host disease [Unknown]
  - Chronic graft versus host disease in lung [Unknown]
  - Chronic graft versus host disease [Unknown]
  - Scleroderma [Unknown]
  - Hepatic failure [Recovered/Resolved]
  - Hepatitis [Unknown]
  - Rash [Unknown]
  - Mucosal inflammation [Unknown]
  - Osteoporosis [Unknown]
  - Jaundice [Unknown]

NARRATIVE: CASE EVENT DATE: 20220701
